FAERS Safety Report 8529604-1 (Version None)
Quarter: 2012Q3

REPORT INFORMATION
  Report Type: 
  Country: None (occurrence: None)
  Receive Date: 20120710
  Receipt Date: 20120629
  Transmission Date: 20120928
  Serious: Yes (Death, Hospitalization, Other)
  Sender: FDA-Public Use
  Company Number: 2012US0231

PATIENT
  Sex: Male

DRUGS (1)
  1. KINERET [Suspect]
     Dosage: 100 MG, 1 IN 1 D, SUBCUTANEOUS
     Route: 058

REACTIONS (4)
  - RENAL IMPAIRMENT [None]
  - PLATELET COUNT DECREASED [None]
  - UNEVALUABLE EVENT [None]
  - HAEMORRHAGE [None]
